FAERS Safety Report 5121267-0 (Version None)
Quarter: 2006Q4

REPORT INFORMATION
  Report Type: 
  Country: None (occurrence: None)
  Receive Date: 20061005
  Receipt Date: 20060920
  Transmission Date: 20070319
  Serious: Yes (Disabling)
  Sender: FDA-Public Use
  Company Number: US-ABBOTT-06P-163-0344421-03

PATIENT
  Sex: Female

DRUGS (15)
  1. RITONAVIR SOFT GELATIN CAPSULES [Suspect]
     Indication: HIV INFECTION
     Route: 048
     Dates: start: 20040721, end: 20060915
  2. TIPRANAVIR [Concomitant]
     Indication: HIV INFECTION
     Route: 048
     Dates: start: 20040721, end: 20060915
  3. VIREAD [Concomitant]
     Indication: HIV INFECTION
     Route: 048
     Dates: start: 20040721, end: 20060915
  4. ABACAVIR [Concomitant]
     Indication: HIV INFECTION
     Route: 048
     Dates: start: 20040721, end: 20060915
  5. LAMIVUDINE [Concomitant]
     Indication: HIV INFECTION
     Route: 048
     Dates: start: 20040721, end: 20060915
  6. SIDERAL [Concomitant]
     Indication: MEDICAL DIET
     Route: 048
     Dates: start: 20051006
  7. FOLIC ACID [Concomitant]
     Indication: VITAMIN SUPPLEMENTATION
     Route: 048
     Dates: start: 19950302
  8. BACTRIM [Concomitant]
     Indication: ANTIBIOTIC PROPHYLAXIS
     Route: 048
     Dates: start: 19950302
  9. BACTRIM [Concomitant]
     Indication: PNEUMOCYSTIS JIROVECI PNEUMONIA
  10. ZITHROMAX [Concomitant]
     Indication: ANTIBIOTIC PROPHYLAXIS
     Route: 048
     Dates: start: 20030220
  11. ZITHROMAX [Concomitant]
     Indication: MYCOBACTERIUM AVIUM COMPLEX INFECTION
  12. CYPROHEPTADINE HYDROCHLORIDE [Concomitant]
     Indication: DECREASED APPETITE
     Route: 048
     Dates: start: 20051101
  13. CALCIUM GLUCONATE [Concomitant]
     Indication: MINERAL SUPPLEMENTATION
     Route: 048
     Dates: start: 20051011
  14. MULTIVITAMIN [Concomitant]
     Indication: MEDICAL DIET
     Route: 048
     Dates: start: 19950302
  15. PEDIASURE [Concomitant]
     Indication: MEDICAL DIET
     Route: 048
     Dates: start: 20060401

REACTIONS (3)
  - COAGULATION TIME PROLONGED [None]
  - CONTUSION [None]
  - MICROCYTIC ANAEMIA [None]
